FAERS Safety Report 6156618-1 (Version None)
Quarter: 2009Q2

REPORT INFORMATION
  Report Type: 
  Country: None (occurrence: None)
  Receive Date: 20090413
  Receipt Date: 20081126
  Transmission Date: 20091009
  Serious: Yes (Death, Hospitalization)
  Sender: FDA-Public Use
  Company Number: OPER20080219

PATIENT
  Age: 66 Year
  Sex: Female
  Weight: 66.2252 kg

DRUGS (1)
  1. OPANA ER [Suspect]
     Dates: start: 20081027, end: 20081103

REACTIONS (3)
  - CARDIAC ARREST [None]
  - GASTRIC PERFORATION [None]
  - SEPSIS [None]
